FAERS Safety Report 20829772 (Version 1)
Quarter: 2022Q2

REPORT INFORMATION
  Report Type: Other
  Country: CA (occurrence: CA)
  Receive Date: 20220513
  Receipt Date: 20220513
  Transmission Date: 20220720
  Serious: Yes (Other)
  Sender: FDA-Public Use
  Company Number: CA-Genus_Lifesciences-USA-POI0580202200158

PATIENT
  Age: 70 Year
  Sex: Female

DRUGS (1)
  1. NYSTATIN [Suspect]
     Active Substance: NYSTATIN
     Indication: Oral candidiasis
     Dosage: 100000 UNITS PER ML
     Route: 048
     Dates: start: 2022, end: 2022

REACTIONS (1)
  - Acute generalised exanthematous pustulosis [Recovered/Resolved]

NARRATIVE: CASE EVENT DATE: 20220101
